FAERS Safety Report 5900738-0 (Version None)
Quarter: 2008Q3

REPORT INFORMATION
  Report Type: 
  Country: None (occurrence: None)
  Receive Date: 20080929
  Receipt Date: 20080917
  Transmission Date: 20090109
  Serious: Yes (Other)
  Sender: FDA-Public Use
  Company Number: GB-RANBAXY-2008RR-18021

PATIENT
  Age: 55 Year
  Sex: Male
  Weight: 91 kg

DRUGS (2)
  1. SIMVASTATIN 5MG TABLETS [Suspect]
     Indication: PROPHYLAXIS
     Dosage: 20 MG, QD
     Route: 048
     Dates: start: 20080813, end: 20080817
  2. RAMIPRIL [Concomitant]
     Route: 065

REACTIONS (2)
  - HYPERHIDROSIS [None]
  - PALPITATIONS [None]
